FAERS Safety Report 6525909-4 (Version None)
Quarter: 2009Q4

REPORT INFORMATION
  Report Type: 
  Country: None (occurrence: None)
  Receive Date: 20091228
  Receipt Date: 20091214
  Transmission Date: 20100525
  Serious: Yes (Life-Threatening, Hospitalization, Other)
  Sender: FDA-Public Use
  Company Number: AE-2009-316

PATIENT
  Age: 77 Year
  Sex: Female

DRUGS (8)
  1. FUROSEMIDE [Suspect]
     Indication: OEDEMA PERIPHERAL
     Dosage: 20MG, ORAL
     Route: 048
  2. VANCOMYCIN [Suspect]
     Indication: WOUND INFECTION
     Dosage: 1G,BID,INTRAVENOUS
     Route: 042
  3. AMILORIDE HYDROCHLORIDE [Suspect]
  4. ATENOLOL [Concomitant]
  5. BENDROFLUMETHIAZIDE [Concomitant]
  6. RAMIPRIL [Concomitant]
  7. OPIOIDS [Concomitant]
  8. SPIRONOLACTONE [Concomitant]

REACTIONS (8)
  - CARDIAC ARREST [None]
  - DRUG INTERACTION [None]
  - HYPERKALAEMIA [None]
  - HYPOKALAEMIA [None]
  - HYPOMAGNESAEMIA [None]
  - OEDEMA PERIPHERAL [None]
  - PLEURAL EFFUSION [None]
  - VENTRICULAR TACHYCARDIA [None]
